FAERS Safety Report 9651093 (Version 3)
Quarter: 2013Q4

REPORT INFORMATION
  Report Type: Spontaneous
  Country: US (occurrence: US)
  Receive Date: 20131029
  Receipt Date: 20131220
  Transmission Date: 20140711
  Serious: Yes (Other)
  Sender: FDA-Public Use
  Company Number: US-PFIZER INC-2013306263

PATIENT
  Age: 82 Year
  Sex: Male
  Weight: 58.5 kg

DRUGS (7)
  1. VIAGRA [Suspect]
     Indication: ERECTILE DYSFUNCTION
     Dosage: 50 MG, AS NEEDED
     Route: 048
  2. VIAGRA [Suspect]
     Dosage: 100 MG, AS NEEDED (USE AS DIRECTED))
     Route: 048
     Dates: start: 20131022
  3. AMLODIPINE [Concomitant]
     Dosage: 2.5 MG, UNK
  4. ATENOLOL [Concomitant]
     Dosage: 25 MG, 2X/DAY
  5. ASA [Concomitant]
     Dosage: 81 MG 2 TAB QD
  6. LIPITOR [Concomitant]
     Dosage: 10 MG, UNK
  7. ATIVAN [Concomitant]
     Dosage: UNK , HS PRN

REACTIONS (3)
  - Dizziness [Recovering/Resolving]
  - Drug ineffective [Unknown]
  - Drug effect incomplete [Unknown]
